FAERS Safety Report 9831392 (Version 2)
Quarter: 2014Q1

REPORT INFORMATION
  Report Type: Spontaneous
  Country: AR (occurrence: AR)
  Receive Date: 20140121
  Receipt Date: 20140207
  Transmission Date: 20141002
  Serious: Yes (Other)
  Sender: FDA-Public Use
  Company Number: AR-AMGEN-ARGSP2014004012

PATIENT
  Age: 60 Year
  Sex: Female

DRUGS (4)
  1. ENBREL [Suspect]
     Indication: RHEUMATOID ARTHRITIS
     Dosage: 50 MG, QWK
     Route: 065
     Dates: start: 20080504, end: 201312
  2. NEUMOTEROL [Concomitant]
     Indication: ASTHMA
     Dosage: UNK, AS NECESSARY
  3. OMEPRAZOL                          /00661201/ [Concomitant]
     Indication: PROPHYLAXIS
     Dosage: UNK
  4. AMLODIPINE [Concomitant]
     Dosage: UNK

REACTIONS (2)
  - Asthma [Recovered/Resolved]
  - Osteoarthritis [Not Recovered/Not Resolved]
